FAERS Safety Report 6943838-9 (Version None)
Quarter: 2010Q3

REPORT INFORMATION
  Report Type: 
  Country: None (occurrence: None)
  Receive Date: 20100826
  Receipt Date: 20100818
  Transmission Date: 20110219
  Serious: Yes (Hospitalization)
  Sender: FDA-Public Use
  Company Number: A0870447A

PATIENT
  Age: 46 Year
  Sex: Female

DRUGS (2)
  1. AVANDARYL [Suspect]
     Route: 048
  2. NO CONCURRENT MEDICATION [Concomitant]

REACTIONS (6)
  - BLOOD GLUCOSE INCREASED [None]
  - CHEST PAIN [None]
  - DYSPEPSIA [None]
  - EXPIRED DRUG ADMINISTERED [None]
  - PRODUCT QUALITY ISSUE [None]
  - VOMITING [None]
